FAERS Safety Report 23157281 (Version 3)
Quarter: 2023Q4

REPORT INFORMATION
  Report Type: Spontaneous
  Country: US (occurrence: US)
  Receive Date: 20231108
  Receipt Date: 20231208
  Transmission Date: 20240110
  Serious: No
  Sender: FDA-Public Use
  Company Number: US-UNITED THERAPEUTICS-UNT-2023-024201

PATIENT
  Sex: Female

DRUGS (6)
  1. TYVASO [Suspect]
     Active Substance: TREPROSTINIL
     Indication: Pulmonary arterial hypertension
     Dosage: 18 ?G, QID
     Dates: start: 2023, end: 2023
  2. TYVASO [Suspect]
     Active Substance: TREPROSTINIL
     Dosage: 54 ?G, QID
     Dates: start: 2023, end: 2023
  3. TYVASO [Suspect]
     Active Substance: TREPROSTINIL
     Dosage: 36 ?G, QID (DECREASED DOSE)
     Dates: start: 2023, end: 2023
  4. TYVASO [Suspect]
     Active Substance: TREPROSTINIL
     Dosage: 72 ?G, QID
     Dates: start: 2023
  5. TYVASO [Suspect]
     Active Substance: TREPROSTINIL
     Dosage: UNK
     Dates: start: 202307
  6. OFEV [Suspect]
     Active Substance: NINTEDANIB
     Indication: Pulmonary arterial hypertension
     Dosage: 150 MG, BID
     Route: 048
     Dates: start: 202307

REACTIONS (8)
  - Cough [Unknown]
  - Vomiting [Unknown]
  - Chest discomfort [Unknown]
  - Diarrhoea [Unknown]
  - Abdominal pain upper [Unknown]
  - Chest pain [Unknown]
  - Device failure [Unknown]
  - Device connection issue [Unknown]

NARRATIVE: CASE EVENT DATE: 20230101
